FAERS Safety Report 7816482-9 (Version None)
Quarter: 2011Q4

REPORT INFORMATION
  Report Type: 
  Country: None (occurrence: None)
  Receive Date: 20111017
  Receipt Date: 20111006
  Transmission Date: 20120403
  Serious: Yes (Life-Threatening, Hospitalization)
  Sender: FDA-Public Use
  Company Number: US-JNJFOC-20111003410

PATIENT
  Sex: Female
  Weight: 61.24 kg

DRUGS (14)
  1. FOLIC ACID [Concomitant]
     Indication: RED BLOOD CELL COUNT ABNORMAL
     Route: 048
  2. PLAQUENIL [Concomitant]
     Indication: SYSTEMIC LUPUS ERYTHEMATOSUS
     Route: 048
  3. TRACLEER [Concomitant]
     Indication: PULMONARY HYPERTENSION
     Route: 048
     Dates: start: 20110101
  4. FENTANYL-100 [Suspect]
     Indication: PULMONARY HYPERTENSION
     Route: 062
     Dates: start: 20010101
  5. SYNTHROID [Concomitant]
     Indication: HYPOTHYROIDISM
     Route: 048
  6. KLOR-CON [Concomitant]
     Indication: PULMONARY HYPERTENSION
     Route: 048
  7. MYCOPHENOLATE MOFETIL (CELLCEPT) [Concomitant]
     Indication: SYSTEMIC LUPUS ERYTHEMATOSUS
     Route: 048
  8. DURAGESIC-100 [Suspect]
     Indication: PULMONARY HYPERTENSION
     Dosage: 100 UG/HR X 3 =300 UG/HR,  50 UG/HR X 1 = 50 UG/HR - TOTAL=350 UG/HR
     Route: 062
  9. DURAGESIC-100 [Suspect]
     Indication: SYSTEMIC LUPUS ERYTHEMATOSUS
     Dosage: 100 UG/HR X 3 =300 UG/HR,  50 UG/HR X 1 = 50 UG/HR - TOTAL=350 UG/HR
     Route: 062
  10. LASIX [Concomitant]
     Dosage: IN AM
     Route: 048
  11. MYCOPHENOLATE MOFETIL (CELLCEPT) [Concomitant]
     Route: 048
  12. LASIX [Concomitant]
     Indication: PULMONARY HYPERTENSION
     Dosage: IN AFTERNOON
     Route: 048
  13. PROCARDIA [Concomitant]
     Indication: BILIARY COLIC
     Route: 048
  14. FENTANYL-100 [Suspect]
     Indication: SYSTEMIC LUPUS ERYTHEMATOSUS
     Route: 062
     Dates: start: 20010101

REACTIONS (13)
  - HYPERTENSION [None]
  - BACTERIAL INFECTION [None]
  - DRUG INEFFECTIVE [None]
  - PRODUCT QUALITY ISSUE [None]
  - WRONG TECHNIQUE IN DRUG USAGE PROCESS [None]
  - SEPSIS [None]
  - FALL [None]
  - BREAKTHROUGH PAIN [None]
  - MYOCARDIAL INFARCTION [None]
  - PULMONARY EMBOLISM [None]
  - PNEUMONIA [None]
  - DEPRESSION [None]
  - JAW FRACTURE [None]
